FAERS Safety Report 18037082 (Version 2)
Quarter: 2020Q3

REPORT INFORMATION
  Report Type: Spontaneous
  Country: PT (occurrence: PT)
  Receive Date: 20200717
  Receipt Date: 20200811
  Transmission Date: 20201103
  Serious: Yes (Other)
  Sender: FDA-Public Use
  Company Number: PT-MYLANLABS-2020M1065090

PATIENT
  Age: 22 Year
  Sex: Female

DRUGS (15)
  1. GEMCITABINE. [Suspect]
     Active Substance: GEMCITABINE
     Indication: HODGKIN^S DISEASE
     Dosage: GVD
     Route: 065
     Dates: start: 201705
  2. BLEOMYCIN [Suspect]
     Active Substance: BLEOMYCIN SULFATE
     Dosage: ABVD REGIMEN
     Route: 065
     Dates: start: 201612
  3. CAELYX [Suspect]
     Active Substance: DOXORUBICIN HYDROCHLORIDE
     Dosage: ABVD REGIMEN
     Route: 065
     Dates: start: 201612
  4. VINBLASTINE SULFATE. [Suspect]
     Active Substance: VINBLASTINE SULFATE
     Dosage: ABVD REGIMEN
     Route: 065
     Dates: start: 201611
  5. BLEOMYCIN [Suspect]
     Active Substance: BLEOMYCIN SULFATE
     Dosage: ABVD REGIMEN
     Route: 065
     Dates: start: 201611
  6. VINORELBINE TARTRATE. [Suspect]
     Active Substance: VINORELBINE TARTRATE
     Indication: HODGKIN^S DISEASE
     Dosage: GVD REGIMEN
     Route: 065
     Dates: start: 201705
  7. VINBLASTINE SULFATE. [Suspect]
     Active Substance: VINBLASTINE SULFATE
     Dosage: ABVD REGIMEN
     Route: 065
     Dates: start: 201612
  8. DACARBAZINE. [Suspect]
     Active Substance: DACARBAZINE
     Dosage: ABVD REGIMEN
     Route: 065
     Dates: start: 201611
  9. CAELYX [Suspect]
     Active Substance: DOXORUBICIN HYDROCHLORIDE
     Dosage: GVD (GEMCITABINE, VINORELBINE AND LIPOSOMAL DOXORUBICIN)
     Route: 065
     Dates: start: 201705
  10. VINBLASTINE SULFATE. [Suspect]
     Active Substance: VINBLASTINE SULFATE
     Indication: HODGKIN^S DISEASE
     Dosage: ABVD REGIMEN
     Route: 065
     Dates: start: 201403
  11. DACARBAZINE. [Suspect]
     Active Substance: DACARBAZINE
     Indication: HODGKIN^S DISEASE
     Dosage: ABVD REGIMEN
     Route: 065
     Dates: start: 201403
  12. DACARBAZINE. [Suspect]
     Active Substance: DACARBAZINE
     Dosage: ABVD REGIMEN
     Route: 065
     Dates: start: 201612
  13. CAELYX [Suspect]
     Active Substance: DOXORUBICIN HYDROCHLORIDE
     Indication: PRODUCT USED FOR UNKNOWN INDICATION
     Dosage: ABVD REGIMEN
     Route: 065
     Dates: start: 201403
  14. BLEOMYCIN [Suspect]
     Active Substance: BLEOMYCIN SULFATE
     Indication: HODGKIN^S DISEASE
     Dosage: ABVD REGIMEN
     Route: 065
     Dates: start: 201403
  15. CAELYX [Suspect]
     Active Substance: DOXORUBICIN HYDROCHLORIDE
     Dosage: ABVD REGIMEN
     Route: 065
     Dates: start: 201611

REACTIONS (3)
  - Product use in unapproved indication [Unknown]
  - Hypersensitivity [Unknown]
  - Off label use [Unknown]
